FAERS Safety Report 19141765 (Version 2)
Quarter: 2021Q2

REPORT INFORMATION
  Report Type: Report from Study
  Country: US (occurrence: US)
  Receive Date: 20210415
  Receipt Date: 20210426
  Transmission Date: 20210717
  Serious: Yes (Hospitalization, Other)
  Sender: FDA-Public Use
  Company Number: US-OTSUKA-2021_012342

PATIENT
  Sex: Male

DRUGS (1)
  1. ASTX727 [Suspect]
     Active Substance: CEDAZURIDINE\DECITABINE
     Indication: MYELODYSPLASTIC SYNDROME
     Dosage: 35 MG DECITABINE AND 100 MG CEDAZURIDINE, QD (DAYS 1?5) EVERY 28 DAYS
     Route: 048
     Dates: start: 20210108

REACTIONS (2)
  - White blood cell count decreased [Unknown]
  - Blood count abnormal [Unknown]
